FAERS Safety Report 8556556-0 (Version None)
Quarter: 2012Q3

REPORT INFORMATION
  Report Type: 
  Country: None (occurrence: None)
  Receive Date: 20120801
  Receipt Date: 20120207
  Transmission Date: 20120928
  Serious: Yes (Hospitalization)
  Sender: FDA-Public Use
  Company Number: DE-MPIJNJ-2011-06600

PATIENT

DRUGS (5)
  1. COTRIM [Concomitant]
     Indication: PROPHYLAXIS
     Dosage: 500 MG, BID
     Route: 048
     Dates: start: 20111103, end: 20111115
  2. ACIC                               /00587301/ [Concomitant]
     Indication: PROPHYLAXIS
     Dosage: 400 MG, TID
     Route: 048
     Dates: start: 20111103, end: 20111221
  3. TILIDIN [Concomitant]
     Indication: PAIN
     Dosage: 50 MG, BID
     Dates: start: 20111103, end: 20111221
  4. PANTOPRAZOLE [Concomitant]
     Indication: PROPHYLAXIS
     Dosage: 40 MG, BID
     Route: 048
     Dates: start: 20111103, end: 20111221
  5. VELCADE [Suspect]
     Indication: MULTIPLE MYELOMA
     Dosage: 2.5 MG, UNK
     Route: 042
     Dates: start: 20111103, end: 20111205

REACTIONS (1)
  - NEPHROTIC SYNDROME [None]
